FAERS Safety Report 7319486-8 (Version None)
Quarter: 2011Q1

REPORT INFORMATION
  Report Type: 
  Country: None (occurrence: None)
  Receive Date: 20110228
  Receipt Date: 20100414
  Transmission Date: 20110831
  Serious: No
  Sender: FDA-Public Use
  Company Number: A0855032A

PATIENT
  Age: 79 Year
  Sex: Male

DRUGS (18)
  1. TAPAZOLE [Concomitant]
  2. SALINE [Concomitant]
  3. DIGOXIN [Concomitant]
  4. NITRO-BID [Concomitant]
  5. SPIRONOLACTONE [Concomitant]
  6. CLONIDINE [Concomitant]
  7. FLOMAX [Concomitant]
  8. OXYGEN [Concomitant]
  9. LAMICTAL [Suspect]
     Indication: PARTIAL SEIZURES
     Dosage: 150MG TWICE PER DAY
     Route: 048
     Dates: start: 20090201
  10. METOPROLOL [Concomitant]
  11. LASIX [Concomitant]
  12. PREDNISOLONE EYE DROPS [Concomitant]
  13. COZAAR [Concomitant]
  14. DILTIAZEM [Concomitant]
  15. WARFARIN SODIUM [Concomitant]
  16. OMEPRAZOLE [Concomitant]
  17. LOVAZA [Concomitant]
  18. DIAZOXIDE [Concomitant]

REACTIONS (3)
  - DIPLOPIA [None]
  - VISION BLURRED [None]
  - DIZZINESS [None]
